FAERS Safety Report 22172585 (Version 6)
Quarter: 2023Q2

REPORT INFORMATION
  Report Type: Spontaneous
  Country: US (occurrence: US)
  Receive Date: 20230404
  Receipt Date: 20230515
  Transmission Date: 20230722
  Serious: Yes (Other)
  Sender: FDA-Public Use
  Company Number: US-PFIZER INC-PV202300061214

PATIENT
  Age: 61 Year
  Sex: Female

DRUGS (1)
  1. XELJANZ XR [Suspect]
     Active Substance: TOFACITINIB CITRATE
     Dosage: 11 MG, DAILY
     Route: 048

REACTIONS (12)
  - Myocardial infarction [Unknown]
  - Cerebrovascular accident [Unknown]
  - Blindness [Unknown]
  - Deafness unilateral [Unknown]
  - Atrial fibrillation [Unknown]
  - Impaired work ability [Unknown]
  - Pain [Not Recovered/Not Resolved]
  - Drug hypersensitivity [Unknown]
  - Limb injury [Unknown]
  - Nail disorder [Unknown]
  - Pain in extremity [Unknown]
  - Cardiac disorder [Unknown]

NARRATIVE: CASE EVENT DATE: 20220701
